FAERS Safety Report 9383844 (Version 1)
Quarter: 2013Q3

REPORT INFORMATION
  Report Type: Spontaneous
  Country: US (occurrence: US)
  Receive Date: 20130704
  Receipt Date: 20130704
  Transmission Date: 20140515
  Serious: No
  Sender: FDA-Public Use
  Company Number: US-009507513-1307USA002428

PATIENT
  Sex: 0

DRUGS (2)
  1. IMPLANON [Suspect]
     Dosage: UNK
     Route: 059
     Dates: start: 20100626
  2. NEXPLANON [Suspect]
     Dosage: UNK
     Route: 059
     Dates: start: 201306

REACTIONS (2)
  - Overdose [Unknown]
  - No adverse event [Unknown]
